FAERS Safety Report 21390557 (Version 4)
Quarter: 2022Q4

REPORT INFORMATION
  Report Type: Spontaneous
  Country: JP (occurrence: JP)
  Receive Date: 20220929
  Receipt Date: 20221121
  Transmission Date: 20230113
  Serious: Yes (Other)
  Sender: FDA-Public Use
  Company Number: JP-ASTELLAS-2022JP014478

PATIENT
  Age: 67 Year
  Sex: Male

DRUGS (5)
  1. PADCEV [Interacting]
     Active Substance: ENFORTUMAB VEDOTIN-EJFV
     Indication: Transitional cell carcinoma
     Dosage: 1.25 MG/KG, ONCE WEEKLY X 3 TIMES, 4TH WEEK WAS INTERRUPTED
     Route: 041
     Dates: start: 20220524
  2. PADCEV [Interacting]
     Active Substance: ENFORTUMAB VEDOTIN-EJFV
     Dosage: 1 MG/KG, ONCE WEEKLY X 3 TIMES, 4TH WEEK WAS INTERRUPTED
     Route: 041
     Dates: start: 202208, end: 202209
  3. PADCEV [Interacting]
     Active Substance: ENFORTUMAB VEDOTIN-EJFV
     Dosage: 1 MG/KG, ONCE WEEKLY X 3 TIMES, 4TH WEEK WAS INTERRUPTED
     Route: 041
     Dates: start: 20221101
  4. KEYTRUDA [Interacting]
     Active Substance: PEMBROLIZUMAB
     Indication: Product used for unknown indication
     Dosage: UNK UNK, UNKNOWN FREQ.
     Route: 065
  5. MIROGABALIN BESYLATE [Concomitant]
     Active Substance: MIROGABALIN BESYLATE
     Indication: Hypoaesthesia
     Dosage: UNK UNK, UNKNOWN FREQ.
     Route: 065

REACTIONS (2)
  - Interstitial lung disease [Recovered/Resolved]
  - Drug interaction [Unknown]

NARRATIVE: CASE EVENT DATE: 20220913
